FAERS Safety Report 7170389-1 (Version None)
Quarter: 2010Q4

REPORT INFORMATION
  Report Type: 
  Country: None (occurrence: None)
  Receive Date: 20101217
  Receipt Date: 20101101
  Transmission Date: 20110411
  Serious: No
  Sender: FDA-Public Use
  Company Number: A0890305A

PATIENT
  Age: 76 Year
  Sex: Male

DRUGS (1)
  1. PROMACTA [Suspect]
     Route: 065
     Dates: start: 20100401

REACTIONS (4)
  - DRUG INEFFECTIVE [None]
  - METABOLIC DISORDER [None]
  - PLATELET COUNT ABNORMAL [None]
  - PLATELET COUNT INCREASED [None]
